FAERS Safety Report 25526402 (Version 1)
Quarter: 2025Q3

REPORT INFORMATION
  Report Type: Spontaneous
  Country: US (occurrence: US)
  Receive Date: 20250707
  Receipt Date: 20250707
  Transmission Date: 20251020
  Serious: Yes (Hospitalization)
  Sender: PFIZER
  Company Number: US-PFIZER INC-PV202500079793

PATIENT
  Age: 30 Year
  Sex: Female

DRUGS (8)
  1. AZITHROMYCIN [Suspect]
     Active Substance: AZITHROMYCIN
     Dosage: DAILY FOR 3 MONTHS
  2. AZITHROMYCIN [Suspect]
     Active Substance: AZITHROMYCIN
     Dosage: 500 MG, DAILY
  3. RIFABUTIN [Suspect]
     Active Substance: RIFABUTIN
     Dosage: 300 MG, DAILY
  4. ETHAMBUTOL [Suspect]
     Active Substance: ETHAMBUTOL HYDROCHLORIDE
     Dosage: DAILY FOR 3 MONTHS
  5. AMIKACIN [Suspect]
     Active Substance: AMIKACIN
     Route: 042
     Dates: start: 202303, end: 202306
  6. CLOFAZIMINE [Suspect]
     Active Substance: CLOFAZIMINE
     Dates: start: 202306
  7. CLOFAZIMINE [Suspect]
     Active Substance: CLOFAZIMINE
     Dosage: 100 MG, DAILY
  8. OMADACYCLINE [Concomitant]
     Active Substance: OMADACYCLINE
     Dosage: 300 MG, DAILY

REACTIONS (1)
  - Bone disorder [Unknown]
